FAERS Safety Report 7692715-7 (Version None)
Quarter: 2011Q3

REPORT INFORMATION
  Report Type: 
  Country: None (occurrence: None)
  Receive Date: 20110819
  Receipt Date: 20110815
  Transmission Date: 20111222
  Serious: No
  Sender: FDA-Public Use
  Company Number: US-PFIZER INC-2011188254

PATIENT
  Sex: Female

DRUGS (1)
  1. QUINAPRIL HCL + HYDROCHLOROTHIAZIDE [Suspect]
     Dosage: 20 MG/12.5 MG

REACTIONS (2)
  - DYSPHAGIA [None]
  - PHARYNGEAL OEDEMA [None]
